FAERS Safety Report 8805856 (Version 1)
Quarter: 2012Q4

REPORT INFORMATION
  Report Type: Spontaneous
  Country: US (occurrence: None)
  Receive Date: 20120917
  Receipt Date: 20120917
  Transmission Date: 20130627
  Serious: Yes (Hospitalization, Other)
  Sender: FDA-Public Use
  Company Number: 2012P1056369

PATIENT
  Age: 12 Year
  Sex: Male

DRUGS (4)
  1. CLINDAMYCIN [Suspect]
     Indication: HEMODYNAMIC INSTABILITY
     Route: 042
  2. CLINDAMYCIN [Suspect]
     Indication: NECROTIZING PNEUMONIA
     Route: 042
  3. CLINDAMYCIN [Suspect]
     Indication: HEMODYNAMIC INSTABILITY
     Route: 042
  4. CLINDAMYCIN [Suspect]
     Indication: NECROTIZING PNEUMONIA
     Route: 042

REACTIONS (6)
  - Hyperphosphataemia [None]
  - Sepsis [None]
  - Dyspnoea [None]
  - Renal failure acute [None]
  - Leg amputation [None]
  - Peritoneal dialysis [None]
